FAERS Safety Report 18243074 (Version 1)
Quarter: 2020Q3

REPORT INFORMATION
  Report Type: Spontaneous
  Country: US (occurrence: US)
  Receive Date: 20200908
  Receipt Date: 20200908
  Transmission Date: 20201103
  Serious: No
  Sender: FDA-Public Use
  Company Number: None

PATIENT
  Age: 41 Year
  Sex: Female
  Weight: 52.16 kg

DRUGS (1)
  1. UBRELVY [Suspect]
     Active Substance: UBROGEPANT
     Indication: MIGRAINE
     Dates: start: 20200903, end: 20200903

REACTIONS (3)
  - Rash erythematous [None]
  - Skin exfoliation [None]
  - Rash [None]

NARRATIVE: CASE EVENT DATE: 20200903
